FAERS Safety Report 24589279 (Version 1)
Quarter: 2024Q4

REPORT INFORMATION
  Report Type: Spontaneous
  Country: BR (occurrence: BR)
  Receive Date: 20241107
  Receipt Date: 20241107
  Transmission Date: 20250114
  Serious: Yes (Other)
  Sender: PFIZER
  Company Number: BR-PFIZER INC-PV202400142982

PATIENT
  Age: 28 Year
  Sex: Female

DRUGS (1)
  1. TALIGLUCERASE ALFA [Suspect]
     Active Substance: TALIGLUCERASE ALFA
     Indication: Gaucher^s disease
     Dosage: 11 IU/KG, EVERY 15 DAYS
     Route: 042
     Dates: start: 20170919

REACTIONS (6)
  - Osteonecrosis [Unknown]
  - Pulmonary hypertension [Unknown]
  - Fatigue [Unknown]
  - Malaise [Unknown]
  - Discomfort [Unknown]
  - Heart rate increased [Recovered/Resolved]

NARRATIVE: CASE EVENT DATE: 20230101
